FAERS Safety Report 12700862 (Version 1)
Quarter: 2016Q3

REPORT INFORMATION
  Report Type: Spontaneous
  Country: US (occurrence: US)
  Receive Date: 20160830
  Receipt Date: 20160830
  Transmission Date: 20161109
  Serious: No
  Sender: FDA-Public Use
  Company Number: US-TWI PHARMACEUTICAL, INC-2016SCTW000009

PATIENT

DRUGS (1)
  1. GUANFACINE. [Suspect]
     Active Substance: GUANFACINE
     Indication: ATTENTION DEFICIT/HYPERACTIVITY DISORDER
     Dosage: UNK UNK, UNKNOWN
     Route: 065

REACTIONS (4)
  - Condition aggravated [Unknown]
  - Attention deficit/hyperactivity disorder [Unknown]
  - Product quality issue [Unknown]
  - Drug ineffective [Unknown]
